FAERS Safety Report 8797765 (Version 2)
Quarter: 2012Q4

REPORT INFORMATION
  Report Type: Spontaneous
  Country: US (occurrence: None)
  Receive Date: 20120917
  Receipt Date: 20121010
  Transmission Date: 20130627
  Serious: Yes (Disabling, Other)
  Sender: FDA-Public Use
  Company Number: ACO_31869_2012

PATIENT
  Sex: Female

DRUGS (7)
  1. AMPYRA [Suspect]
     Indication: DRUG USE FOR UNKNOWN INDICATION
     Route: 048
  2. COPAXONE (GLATIRAMER ACETATE) [Concomitant]
  3. REBIF (INTERFERON BETA-1A) [Concomitant]
  4. AVONEX (INTERFERON BETA-1A) [Concomitant]
  5. BACLOFEN (BACLOFEN) (BACLOFEN) [Concomitant]
  6. HYDROCODONE W/APAP (HYDROCODONE BITARTRATE, PARACETAMOL) [Concomitant]
  7. VESICARE (SOLIFENACIN SUCCINATE) [Concomitant]

REACTIONS (3)
  - Abasia [None]
  - Multiple sclerosis [None]
  - Drug ineffective [None]
